FAERS Safety Report 6620877-9 (Version None)
Quarter: 2010Q1

REPORT INFORMATION
  Report Type: 
  Country: None (occurrence: None)
  Receive Date: 20100309
  Receipt Date: 20100302
  Transmission Date: 20100710
  Serious: Yes (Other)
  Sender: FDA-Public Use
  Company Number: B0633681A

PATIENT
  Sex: Male

DRUGS (6)
  1. NIQUITIN CQ CLEAR 21MG [Suspect]
     Indication: DRUG USE FOR UNKNOWN INDICATION
     Dosage: 21MG PER DAY
     Route: 062
     Dates: start: 20100215, end: 20100217
  2. ASPIRIN [Concomitant]
  3. RAMIPRIL [Concomitant]
  4. PREDNISOLONE [Concomitant]
  5. PENICILLIN [Concomitant]
  6. ACYCLOVIR [Concomitant]

REACTIONS (4)
  - HAEMORRHAGE [None]
  - PAIN IN EXTREMITY [None]
  - PHLEBITIS [None]
  - VASODILATATION [None]
